FAERS Safety Report 7243318-X (Version None)
Quarter: 2011Q1

REPORT INFORMATION
  Report Type: 
  Country: None (occurrence: None)
  Receive Date: 20110125
  Receipt Date: 20101129
  Transmission Date: 20110831
  Serious: Yes (Hospitalization)
  Sender: FDA-Public Use
  Company Number: US-BRISTOL-MYERS SQUIBB COMPANY-15352941

PATIENT
  Age: 67 Year
  Sex: Male

DRUGS (9)
  1. GEMFIBROZIL [Concomitant]
  2. ASPIRIN [Concomitant]
  3. SYMBICORT [Concomitant]
  4. PRILOSEC [Concomitant]
     Dosage: CALCIUM
  5. MINOCYCLINE HCL [Concomitant]
  6. CISPLATIN [Suspect]
     Indication: HEAD AND NECK CANCER
     Dosage: 65MG
     Route: 042
     Dates: start: 20071221
  7. CISPLATIN [Suspect]
     Indication: TONGUE NEOPLASM MALIGNANT STAGE UNSPECIFIED
     Dosage: 65MG
     Route: 042
     Dates: start: 20071221
  8. AMLODIPINE BESYLATE+BENAZEPRIL HCL [Concomitant]
     Dosage: 1 DF:5/20MG
  9. VITAMIN D [Concomitant]

REACTIONS (1)
  - BLOOD SODIUM DECREASED [None]
